FAERS Safety Report 7271240-1 (Version None)
Quarter: 2011Q1

REPORT INFORMATION
  Report Type: 
  Country: None (occurrence: None)
  Receive Date: 20110202
  Receipt Date: 20110120
  Transmission Date: 20110831
  Serious: Yes (Hospitalization)
  Sender: FDA-Public Use
  Company Number: US-ELI_LILLY_AND_COMPANY-US201011007266

PATIENT
  Sex: Female

DRUGS (10)
  1. NAMENDA [Concomitant]
     Dosage: 10 MG, UNK
  2. OXYGEN [Concomitant]
  3. LOPRESSOR [Concomitant]
     Dosage: 50 MG, UNK
  4. LEVOTHYROXINE [Concomitant]
     Dosage: 75 UG, UNK
  5. PREDNISONE [Concomitant]
     Dosage: 10 MG, UNK
  6. FORTEO [Suspect]
     Dosage: 20 UG, DAILY (1/D)
     Route: 058
     Dates: start: 20101202
  7. LIPITOR [Concomitant]
     Dosage: 10 MG, UNK
  8. FORTEO [Suspect]
     Indication: OSTEOPOROSIS
     Dosage: 20 UG, DAILY (1/D)
     Route: 058
     Dates: start: 20101001, end: 20101128
  9. GLIMEPIRIDE [Concomitant]
     Dosage: 1 MG, UNK
  10. REMICADE [Concomitant]

REACTIONS (1)
  - CARDIAC FAILURE CONGESTIVE [None]
